FAERS Safety Report 18601930 (Version 2)
Quarter: 2020Q4

REPORT INFORMATION
  Report Type: Report from Study
  Country: CO (occurrence: CO)
  Receive Date: 20201210
  Receipt Date: 20201221
  Transmission Date: 20210114
  Serious: Yes (Death, Hospitalization, Other)
  Sender: FDA-Public Use
  Company Number: NVSC2020CO329573

PATIENT
  Age: 38 Year
  Sex: Male
  Weight: 80 kg

DRUGS (2)
  1. MEKINIST [Suspect]
     Active Substance: TRAMETINIB DIMETHYL SULFOXIDE
     Indication: BRAF V600E MUTATION POSITIVE
     Dosage: 2 MG, QD
     Route: 048
     Dates: start: 20200822, end: 202011
  2. TAFINLAR [Suspect]
     Active Substance: DABRAFENIB MESYLATE
     Indication: BRAF V600E MUTATION POSITIVE
     Dosage: 150 MG, Q12H
     Route: 048
     Dates: start: 20200822, end: 202011

REACTIONS (20)
  - Back pain [Unknown]
  - Tachycardia [Unknown]
  - Chest pain [Unknown]
  - Heart rate increased [Unknown]
  - Abdominal pain [Unknown]
  - Metastases to spleen [Unknown]
  - Bone lesion [Unknown]
  - Speech disorder [Unknown]
  - Chills [Unknown]
  - Metastases to lung [Unknown]
  - Metastases to bone [Unknown]
  - Metastases to liver [Unknown]
  - Cardio-respiratory arrest [Fatal]
  - Cold sweat [Unknown]
  - Insomnia [Unknown]
  - Hypoaesthesia [Unknown]
  - Hypoaesthesia oral [Unknown]
  - Constipation [Unknown]
  - Anxiety [Unknown]
  - Decreased appetite [Unknown]

NARRATIVE: CASE EVENT DATE: 20201130
